FAERS Safety Report 4869643-5 (Version None)
Quarter: 2005Q4

REPORT INFORMATION
  Report Type: 
  Country: None (occurrence: None)
  Receive Date: 20051227
  Receipt Date: 20051223
  Transmission Date: 20060501
  Serious: Yes (Other)
  Sender: FDA-Public Use
  Company Number: HQWYE041914OCT05

PATIENT
  Age: 69 Year
  Sex: Male

DRUGS (10)
  1. RAPAMUNE [Suspect]
     Indication: PROPHYLAXIS AGAINST TRANSPLANT REJECTION
     Dosage: 7 MG 1X PER 1 DAY ORAL
     Route: 048
     Dates: start: 20051003, end: 20051010
  2. RAPAMUNE [Suspect]
  3. SIMULECT [Concomitant]
  4. CELLCEPT [Concomitant]
  5. DOXAZOSIN [Concomitant]
  6. SULFAMETHOXAZOLE + TRIMETHOPRIM [Concomitant]
  7. ZANTAC [Concomitant]
  8. ORALDINE (HEXETIDINE) [Concomitant]
  9. PREDNISONE [Concomitant]
  10. ATORVASTATIN CALCIUM [Concomitant]

REACTIONS (8)
  - CYTOMEGALOVIRUS ANTIBODY POSITIVE [None]
  - DIABETES MELLITUS [None]
  - DRUG LEVEL INCREASED [None]
  - INSOMNIA [None]
  - KIDNEY TRANSPLANT REJECTION [None]
  - PAIN [None]
  - RENAL TUBULAR NECROSIS [None]
  - URINARY TRACT INFECTION [None]
